FAERS Safety Report 21486926 (Version 1)
Quarter: 2022Q4

REPORT INFORMATION
  Report Type: Spontaneous
  Country: US (occurrence: None)
  Receive Date: 20221019
  Receipt Date: 20221019
  Transmission Date: 20230113
  Serious: Yes (Hospitalization)
  Sender: FDA-Public Use
  Company Number: None

PATIENT
  Age: 68 Year
  Sex: Male

DRUGS (1)
  1. OPSUMIT [Suspect]
     Active Substance: MACITENTAN
     Indication: Pulmonary hypertension
     Dosage: FREQUENCY : DAILY;?
     Route: 048
     Dates: start: 20200914

REACTIONS (17)
  - Dyspnoea [None]
  - Cough [None]
  - Productive cough [None]
  - Oedema peripheral [None]
  - Decreased appetite [None]
  - Urine output decreased [None]
  - Respiratory distress [None]
  - Leukocytosis [None]
  - Lactic acidosis [None]
  - Acute kidney injury [None]
  - Hyperkalaemia [None]
  - Atrial fibrillation [None]
  - Sepsis [None]
  - Pericardial effusion [None]
  - Cardiac tamponade [None]
  - Pericarditis [None]
  - Therapy interrupted [None]

NARRATIVE: CASE EVENT DATE: 20221014
